FAERS Safety Report 4798065-0 (Version None)
Quarter: 2005Q4

REPORT INFORMATION
  Report Type: 
  Country: None (occurrence: None)
  Receive Date: 20051006
  Receipt Date: 20051006
  Transmission Date: 20060501
  Serious: Yes (Disabling)
  Sender: FDA-Public Use
  Company Number: None

PATIENT
  Age: 28 Year
  Sex: Female
  Weight: 49.8957 kg

DRUGS (4)
  1. LUVOX [Suspect]
     Indication: OBSESSIVE-COMPULSIVE DISORDER
     Dosage: 100 MG
     Dates: start: 19991201, end: 20030101
  2. LUVOX [Suspect]
     Indication: PANIC DISORDER
     Dosage: 100 MG
     Dates: start: 19991201, end: 20030101
  3. PAXIL [Suspect]
     Indication: OBSESSIVE-COMPULSIVE DISORDER
     Dosage: 25 MG (TWENTY FIVE)
     Dates: start: 20030101, end: 20040901
  4. PAXIL [Suspect]
     Indication: PANIC DISORDER
     Dosage: 25 MG (TWENTY FIVE)
     Dates: start: 20030101, end: 20040901

REACTIONS (16)
  - AGGRESSION [None]
  - BONE PAIN [None]
  - BURNING SENSATION [None]
  - DEPRESSION [None]
  - DRUG WITHDRAWAL SYNDROME [None]
  - DYSPAREUNIA [None]
  - EXCITABILITY [None]
  - FEELING COLD [None]
  - GENITAL PAIN [None]
  - HOT FLUSH [None]
  - HYPERACUSIS [None]
  - HYPOAESTHESIA [None]
  - IRRITABILITY [None]
  - MYALGIA [None]
  - PAIN OF SKIN [None]
  - SENSORY DISTURBANCE [None]
